FAERS Safety Report 25277037 (Version 2)
Quarter: 2025Q2

REPORT INFORMATION
  Report Type: Spontaneous
  Country: US (occurrence: US)
  Receive Date: 20250507
  Receipt Date: 20250515
  Transmission Date: 20250717
  Serious: Yes (Hospitalization)
  Sender: ROCHE
  Company Number: US-ROCHE-10000276221

PATIENT
  Sex: Female

DRUGS (2)
  1. ITOVEBI [Suspect]
     Active Substance: INAVOLISIB
     Indication: Breast cancer metastatic
     Route: 050
     Dates: start: 20250126
  2. ITOVEBI [Suspect]
     Active Substance: INAVOLISIB
     Indication: Metastases to bone

REACTIONS (1)
  - Hyperglycaemia [Recovering/Resolving]
